FAERS Safety Report 23696408 (Version 1)
Quarter: 2024Q2

REPORT INFORMATION
  Report Type: Spontaneous
  Country: PL (occurrence: PL)
  Receive Date: 20240402
  Receipt Date: 20240402
  Transmission Date: 20240716
  Serious: Yes (Death, Hospitalization, Other)
  Sender: FDA-Public Use
  Company Number: PL-009507513-2311POL005065

PATIENT
  Age: 59 Year
  Sex: Male
  Weight: 76.5 kg

DRUGS (10)
  1. CARBOPLATIN [Suspect]
     Active Substance: CARBOPLATIN
     Indication: Non-small cell lung cancer metastatic
     Dosage: UNK, 3 WEEK (5 AREA UNDER CURVE (AUC), 1Q3W)
     Route: 042
     Dates: start: 20230704, end: 20230725
  2. CARBOPLATIN [Suspect]
     Active Substance: CARBOPLATIN
     Dosage: UNK, 3 WEEK (4 AREA UNDER CURVE (AUC), 1Q3W)
     Route: 042
     Dates: start: 20230814, end: 20230906
  3. ACASUNLIMAB [Suspect]
     Active Substance: ACASUNLIMAB
     Indication: Non-small cell lung cancer metastatic
     Dosage: 100 MILLIGRAM, 3 WEEK (100 MILLIGRAM, 1Q3W)
     Route: 042
     Dates: start: 20230704, end: 20231018
  4. PEMBROLIZUMAB [Suspect]
     Active Substance: PEMBROLIZUMAB
     Indication: Non-small cell lung cancer metastatic
     Dosage: 200 MILLIGRAM, 3 WEEK (200 MILLIGRAM, 1Q3W)
     Route: 042
     Dates: start: 20230704, end: 20231018
  5. PACLITAXEL [Suspect]
     Active Substance: PACLITAXEL
     Indication: Non-small cell lung cancer metastatic
     Dosage: 200 MILLIGRAM/SQ. METER, 3 WEEK (200 MILLIGRAM/SQ. METER, 1Q3W)
     Route: 042
     Dates: start: 20230704, end: 20230725
  6. PACLITAXEL [Suspect]
     Active Substance: PACLITAXEL
     Dosage: 150 MILLIGRAM/SQ. METER, 3 WEEK (150 MILLIGRAM/SQ. METER, 1Q3W)
     Route: 042
     Dates: start: 20230814, end: 20230906
  7. INDAPAMIDE [Concomitant]
     Active Substance: INDAPAMIDE
     Indication: Product used for unknown indication
     Dosage: UNK
     Route: 065
     Dates: start: 20100101
  8. OMEPRAZOLE [Concomitant]
     Active Substance: OMEPRAZOLE
     Indication: Product used for unknown indication
     Dosage: UNK
     Route: 065
     Dates: start: 20231103
  9. PERINDOPRIL [Concomitant]
     Active Substance: PERINDOPRIL
     Indication: Product used for unknown indication
     Dosage: UNK
     Route: 065
     Dates: start: 20100101
  10. SANPROBI [Concomitant]
     Indication: Product used for unknown indication
     Dosage: UNK
     Route: 065
     Dates: start: 20230712

REACTIONS (2)
  - Pneumonia [Fatal]
  - Hepatitis [Not Recovered/Not Resolved]

NARRATIVE: CASE EVENT DATE: 20231025
